FAERS Safety Report 18246084 (Version 1)
Quarter: 2020Q3

REPORT INFORMATION
  Report Type: Report from Study
  Country: BR (occurrence: BR)
  Receive Date: 20200909
  Receipt Date: 20200909
  Transmission Date: 20201103
  Serious: Yes (Other)
  Sender: FDA-Public Use
  Company Number: NVSC2019BR057660

PATIENT
  Sex: Female

DRUGS (13)
  1. AMYTRIL [Concomitant]
     Active Substance: AMITRIPTYLINE HYDROCHLORIDE
     Indication: HEADACHE
     Dosage: UNK (STARTED SOME TIME AGO)
     Route: 065
  2. PACO [Concomitant]
     Active Substance: ACETAMINOPHEN\CODEINE PHOSPHATE
     Indication: PRODUCT USED FOR UNKNOWN INDICATION
     Route: 065
  3. BETATRINTA [Concomitant]
     Active Substance: BETAMETHASONE DIPROPIONATE\BETAMETHASONE SODIUM PHOSPHATE
     Indication: PRODUCT USED FOR UNKNOWN INDICATION
     Route: 065
  4. COSENTYX [Suspect]
     Active Substance: SECUKINUMAB
     Dosage: UNK
     Route: 065
     Dates: start: 20200807
  5. COSENTYX [Suspect]
     Active Substance: SECUKINUMAB
     Indication: ANKYLOSING SPONDYLITIS
     Dosage: UNK
     Route: 065
     Dates: start: 20191112
  6. VELIJA [Concomitant]
     Active Substance: DULOXETINE HYDROCHLORIDE
     Indication: FIBROMYALGIA
     Dosage: UNK (STARTED MORE THAN 6 YEARS AGO)
     Route: 065
  7. COSENTYX [Suspect]
     Active Substance: SECUKINUMAB
     Dosage: UNK
     Route: 065
     Dates: start: 20191127
  8. CATAFLAM DD [Suspect]
     Active Substance: DICLOFENAC
     Indication: PRODUCT USED FOR UNKNOWN INDICATION
     Dosage: UNK
     Route: 065
  9. MUSCULARE [Concomitant]
     Indication: SLEEP DISORDER
     Dosage: UNK
     Route: 065
  10. SALONPAS PAIN RELIEF [Concomitant]
     Active Substance: MENTHOL\METHYL SALICYLATE
     Indication: PRODUCT USED FOR UNKNOWN INDICATION
     Route: 065
  11. VIMOVO [Concomitant]
     Active Substance: ESOMEPRAZOLE MAGNESIUM\NAPROXEN
     Indication: PRODUCT USED FOR UNKNOWN INDICATION
     Route: 065
  12. TRAMAL [Concomitant]
     Active Substance: TRAMADOL
     Indication: PRODUCT USED FOR UNKNOWN INDICATION
     Dosage: UNK
     Route: 065
  13. AMYTRIL [Concomitant]
     Active Substance: AMITRIPTYLINE HYDROCHLORIDE
     Indication: MIGRAINE

REACTIONS (18)
  - Mobility decreased [Unknown]
  - Eye pain [Recovering/Resolving]
  - Ear injury [Recovering/Resolving]
  - Oral mucosal erythema [Recovering/Resolving]
  - Ankylosing spondylitis [Unknown]
  - Dyspnoea [Unknown]
  - Ear pain [Recovering/Resolving]
  - Sputum discoloured [Recovering/Resolving]
  - Oral pain [Recovering/Resolving]
  - Pain [Recovering/Resolving]
  - Mouth injury [Recovering/Resolving]
  - Pain in extremity [Unknown]
  - Rhinalgia [Recovering/Resolving]
  - Dysarthria [Recovering/Resolving]
  - Musculoskeletal stiffness [Unknown]
  - Arthralgia [Unknown]
  - Drug ineffective [Recovering/Resolving]
  - Arthritis [Unknown]

NARRATIVE: CASE EVENT DATE: 2012
